FAERS Safety Report 7554484-0 (Version None)
Quarter: 2011Q2

REPORT INFORMATION
  Report Type: 
  Country: None (occurrence: None)
  Receive Date: 20110617
  Receipt Date: 20110610
  Transmission Date: 20111010
  Serious: Yes (Hospitalization)
  Sender: FDA-Public Use
  Company Number: A0931761A

PATIENT
  Sex: Female

DRUGS (3)
  1. LYRICA [Suspect]
     Route: 065
  2. CONCURRENT MEDICATIONS [Concomitant]
  3. WELLBUTRIN [Suspect]
     Dosage: 75MG UNKNOWN
     Route: 048

REACTIONS (3)
  - TREATMENT NONCOMPLIANCE [None]
  - ADVERSE EVENT [None]
  - DRUG INTERACTION [None]
